FAERS Safety Report 5492408-0 (Version None)
Quarter: 2007Q4

REPORT INFORMATION
  Report Type: 
  Country: None (occurrence: None)
  Receive Date: 20071015
  Receipt Date: 20070813
  Transmission Date: 20080405
  Serious: No
  Sender: FDA-Public Use
  Company Number: 2007SP002826

PATIENT
  Age: 66 Year
  Sex: Male

DRUGS (2)
  1. LUNESTA [Suspect]
     Dosage: 3 MG; ORAL; 4.5 MG, HS; ORAL
     Route: 048
     Dates: start: 20070807, end: 20070801
  2. LUNESTA [Suspect]
     Dosage: 3 MG; ORAL; 4.5 MG, HS; ORAL
     Route: 048
     Dates: start: 20070809, end: 20070811

REACTIONS (2)
  - DRUG INEFFECTIVE [None]
  - INITIAL INSOMNIA [None]
